FAERS Safety Report 22149197 (Version 7)
Quarter: 2024Q3

REPORT INFORMATION
  Report Type: Report from Study
  Country: CA (occurrence: CA)
  Receive Date: 20230329
  Receipt Date: 20240820
  Transmission Date: 20241017
  Serious: Yes (Other)
  Sender: JOHNSON AND JOHNSON
  Company Number: CA-JNJFOC-20230355492

PATIENT
  Age: 58 Year
  Sex: Female
  Weight: 198 kg

DRUGS (6)
  1. STELARA [Suspect]
     Active Substance: USTEKINUMAB
     Indication: Crohn^s disease
     Route: 058
  2. STELARA [Suspect]
     Active Substance: USTEKINUMAB
     Dosage: ADDITIONAL EXPIRY DATE: JUN-2026
     Route: 058
     Dates: start: 20180913
  3. STELARA [Suspect]
     Active Substance: USTEKINUMAB
     Dosage: ON 14-AUG-2024, THE PATIENT RECEIVED 76TH INJECTION OF USTEKINUMAB AT A DOSE OF 90 MG.
     Route: 058
     Dates: start: 20180913
  4. CEFIXIME [Suspect]
     Active Substance: CEFIXIME
     Indication: Haematological infection
     Route: 048
     Dates: end: 20230823
  5. CEFIXIME [Suspect]
     Active Substance: CEFIXIME
     Indication: Kidney infection
  6. WARFARIN [Concomitant]
     Active Substance: WARFARIN

REACTIONS (5)
  - Kidney infection [Recovered/Resolved]
  - Nephrolithiasis [Recovering/Resolving]
  - Crohn^s disease [Unknown]
  - Cystitis [Unknown]
  - Haematological infection [Recovered/Resolved]

NARRATIVE: CASE EVENT DATE: 20240427
